FAERS Safety Report 12520481 (Version 1)
Quarter: 2016Q3

REPORT INFORMATION
  Report Type: Spontaneous
  Country: JP (occurrence: JP)
  Receive Date: 20160701
  Receipt Date: 20160701
  Transmission Date: 20161109
  Serious: Yes (Hospitalization)
  Sender: FDA-Public Use
  Company Number: JP-TEVA-2016-JP-001506J

PATIENT
  Age: 73 Year
  Sex: Male

DRUGS (12)
  1. LEVOFLOXACIN TABLET 500MG ^TEVA^ [Suspect]
     Active Substance: LEVOFLOXACIN
     Indication: ABDOMINAL PAIN UPPER
     Dosage: 500 MILLIGRAM DAILY;
     Route: 048
     Dates: start: 20160516
  2. ATELEC [Concomitant]
     Active Substance: CILNIDIPINE
     Dosage: 10 MILLIGRAM DAILY;
     Route: 048
  3. EPADEL [Concomitant]
     Active Substance: ICOSAPENT
     Dosage: 1800 MILLIGRAM DAILY;
     Route: 048
  4. LOXONIN [Concomitant]
     Active Substance: LOXOPROFEN SODIUM
     Route: 065
  5. BIOFERMIN R [Concomitant]
     Active Substance: BACILLUS SUBTILIS\LACTOBACILLUS ACIDOPHILUS\STREPTOCOCCUS FAECAIS
     Dosage: 9 GRAM DAILY;
     Route: 065
  6. CALONAL [Concomitant]
     Active Substance: ACETAMINOPHEN
     Dosage: 400 MILLIGRAM DAILY;
     Route: 048
  7. BAYASPIRIN [Concomitant]
     Active Substance: ASPIRIN
     Dosage: 100 MILLIGRAM DAILY;
     Route: 048
  8. VALSARTAN. [Concomitant]
     Active Substance: VALSARTAN
     Dosage: 40 MILLIGRAM DAILY;
     Route: 048
  9. CRESTOR [Concomitant]
     Active Substance: ROSUVASTATIN CALCIUM
     Dosage: 25 MILLIGRAM DAILY;
     Route: 048
  10. TRAZENTA [Concomitant]
     Active Substance: LINAGLIPTIN
     Dosage: 5 MILLIGRAM DAILY;
     Route: 048
  11. NEXIUM [Concomitant]
     Active Substance: ESOMEPRAZOLE MAGNESIUM
     Dosage: 20 MILLIGRAM DAILY;
     Route: 048
  12. GLIMICRON [Concomitant]
     Active Substance: GLICLAZIDE
     Dosage: 20 MILLIGRAM DAILY;
     Route: 048

REACTIONS (2)
  - Back pain [Recovered/Resolved]
  - Abdominal pain upper [Recovered/Resolved]

NARRATIVE: CASE EVENT DATE: 20160516
